FAERS Safety Report 10279955 (Version 1)
Quarter: 2014Q3

REPORT INFORMATION
  Report Type: Spontaneous
  Country: CM (occurrence: None)
  Receive Date: 20140701
  Receipt Date: 20140701
  Transmission Date: 20150326
  Serious: Yes (Hospitalization)
  Sender: FDA-Public Use
  Company Number: 2014AMD00014

PATIENT
  Age: 58 Year
  Sex: Female

DRUGS (4)
  1. MECTIZAN [Suspect]
     Active Substance: IVERMECTIN
     Indication: FILARIASIS LYMPHATIC
     Dosage: 3 TABLETS
     Dates: start: 20120821
  2. ALBENDAZOLE TABLETS (ALBENDAZOLE) TABLET [Suspect]
     Active Substance: ALBENDAZOLE
     Indication: ONCHOCERCIASIS
     Dosage: 1 TABLET
     Dates: start: 20120821
  3. ALBENDAZOLE TABLETS (ALBENDAZOLE) TABLET [Suspect]
     Active Substance: ALBENDAZOLE
     Indication: FILARIASIS LYMPHATIC
     Dosage: 1 TABLET
     Dates: start: 20120821
  4. MECTIZAN [Suspect]
     Active Substance: IVERMECTIN
     Indication: ONCHOCERCIASIS
     Dosage: 3 TABLETS
     Dates: start: 20120821

REACTIONS (3)
  - Petechiae [None]
  - Ecchymosis [None]
  - Dermatitis bullous [None]

NARRATIVE: CASE EVENT DATE: 20120825
